FAERS Safety Report 18756481 (Version 1)
Quarter: 2021Q1

REPORT INFORMATION
  Report Type: Spontaneous
  Country: US (occurrence: US)
  Receive Date: 20210115
  Receipt Date: 20210115
  Transmission Date: 20210419
  Serious: Yes (Hospitalization)
  Sender: FDA-Public Use
  Company Number: None

PATIENT
  Age: 69 Year
  Sex: Male
  Weight: 79.38 kg

DRUGS (3)
  1. 5?FLUOROURACIL [Suspect]
     Active Substance: FLUOROURACIL
  2. OXALIPLATIN. [Suspect]
     Active Substance: OXALIPLATIN
  3. LEUCOVORIN CALCIUM (FOLINIC ACID) [Suspect]
     Active Substance: LEUCOVORIN CALCIUM

REACTIONS (11)
  - Delirium [None]
  - Dyspnoea [None]
  - Lung consolidation [None]
  - Respiratory failure [None]
  - Vocal cord disorder [None]
  - Pneumonia escherichia [None]
  - Vocal cord dysfunction [None]
  - Atrial fibrillation [None]
  - Pneumothorax [None]
  - Pleural effusion [None]
  - Chest pain [None]

NARRATIVE: CASE EVENT DATE: 20201216
